FAERS Safety Report 17501980 (Version 1)
Quarter: 2020Q1

REPORT INFORMATION
  Report Type: Spontaneous
  Country: US (occurrence: US)
  Receive Date: 20200305
  Receipt Date: 20200305
  Transmission Date: 20200409
  Serious: Yes (Other)
  Sender: FDA-Public Use
  Company Number: None

PATIENT
  Age: 25 Year
  Sex: Female
  Weight: 92.25 kg

DRUGS (3)
  1. IBUPROFEN. [Concomitant]
     Active Substance: IBUPROFEN
  2. AMOXICILLIN. [Concomitant]
     Active Substance: AMOXICILLIN
  3. PROGESTERONE E4M SIZE 00 200MG VEGGIE [Suspect]
     Active Substance: PROGESTERONE
     Indication: PROGESTERONE DECREASED
     Dosage: ?          QUANTITY:30 CAPSULE(S);?
     Route: 048
     Dates: start: 20200302, end: 20200303

REACTIONS (8)
  - Heart rate increased [None]
  - Panic attack [None]
  - Discomfort [None]
  - Tremor [None]
  - Feeling jittery [None]
  - Feeling abnormal [None]
  - Hot flush [None]
  - Headache [None]

NARRATIVE: CASE EVENT DATE: 20200303
